FAERS Safety Report 20410327 (Version 1)
Quarter: 2022Q1

REPORT INFORMATION
  Report Type: Report from Study
  Country: TW (occurrence: TW)
  Receive Date: 20220201
  Receipt Date: 20220201
  Transmission Date: 20220423
  Serious: Yes (Hospitalization)
  Sender: FDA-Public Use
  Company Number: TW-ABBVIE-22K-153-4254931-00

PATIENT
  Age: 72 Year
  Sex: Male
  Weight: 40 kg

DRUGS (2)
  1. HUMIRA [Suspect]
     Active Substance: ADALIMUMAB
     Indication: Rheumatoid arthritis
     Route: 058
     Dates: start: 20180327
  2. HUMIRA [Suspect]
     Active Substance: ADALIMUMAB
     Indication: Rheumatoid arthritis
     Route: 058
     Dates: start: 20100923

REACTIONS (6)
  - Melaena [Recovered/Resolved]
  - Gastric ulcer [Unknown]
  - Haematemesis [Unknown]
  - Occult blood positive [Unknown]
  - Respiratory alkalosis [Unknown]
  - Coma scale [Unknown]

NARRATIVE: CASE EVENT DATE: 20220110
